FAERS Safety Report 18855143 (Version 1)
Quarter: 2021Q1

REPORT INFORMATION
  Report Type: Spontaneous
  Country: US (occurrence: US)
  Receive Date: 20210205
  Receipt Date: 20210205
  Transmission Date: 20210420
  Serious: No
  Sender: FDA-Public Use
  Company Number: US-BAYER-2021-050767

PATIENT
  Sex: Female

DRUGS (2)
  1. CLIMARA [Suspect]
     Active Substance: ESTRADIOL
     Indication: OSTEOPOROSIS
  2. CLIMARA [Suspect]
     Active Substance: ESTRADIOL
     Indication: MENOPAUSE
     Dosage: UNK
     Route: 062
     Dates: start: 2005

REACTIONS (3)
  - Wrong technique in product usage process [None]
  - Product dose omission issue [None]
  - Product adhesion issue [Not Recovered/Not Resolved]

NARRATIVE: CASE EVENT DATE: 2018
